FAERS Safety Report 10218248 (Version 1)
Quarter: 2014Q2

REPORT INFORMATION
  Report Type: Other
  Country: TR (occurrence: TR)
  Receive Date: 20140605
  Receipt Date: 20140605
  Transmission Date: 20141212
  Serious: Yes (Life-Threatening, Hospitalization)
  Sender: FDA-Public Use
  Company Number: TR-BRISTOL-MYERS SQUIBB COMPANY-20952628

PATIENT
  Age: 65 Year
  Sex: Male

DRUGS (5)
  1. WARFARIN SODIUM [Suspect]
  2. ASPIRIN [Suspect]
  3. LOSARTAN [Concomitant]
  4. ROSIGLITAZONE [Concomitant]
  5. REPAGLINIDE [Concomitant]

REACTIONS (5)
  - Eye haemorrhage [Unknown]
  - Haematuria [Unknown]
  - Melaena [Unknown]
  - Ecchymosis [Unknown]
  - Retinal detachment [Unknown]
